FAERS Safety Report 18961868 (Version 2)
Quarter: 2021Q1

REPORT INFORMATION
  Report Type: Spontaneous
  Country: JP (occurrence: JP)
  Receive Date: 20210302
  Receipt Date: 20210303
  Transmission Date: 20210420
  Serious: Yes (Death, Hospitalization, Other)
  Sender: FDA-Public Use
  Company Number: JP-BAXTER-2021BAX003566

PATIENT
  Age: 76 Year
  Sex: Female

DRUGS (7)
  1. REMIFENTANIL [Suspect]
     Active Substance: REMIFENTANIL
     Indication: ANALGESIC THERAPY
     Route: 065
     Dates: start: 20191126, end: 20191126
  2. LEVOBUPIVACAINE [Suspect]
     Active Substance: LEVOBUPIVACAINE
     Indication: GENERAL ANAESTHESIA
     Dosage: SINGLE PERIPHERAL VENOUS LINE 20 ML
     Route: 042
  3. FENTANYL. [Suspect]
     Active Substance: FENTANYL
     Indication: INDUCTION OF ANAESTHESIA
     Route: 065
  4. PROPOFOL. [Suspect]
     Active Substance: PROPOFOL
     Indication: INDUCTION OF ANAESTHESIA
     Route: 042
     Dates: start: 20191126, end: 20191126
  5. ROCURONIUM [Suspect]
     Active Substance: ROCURONIUM BROMIDE
     Indication: HYPOTONIA
     Route: 065
     Dates: start: 20191126, end: 20191126
  6. OXYGEN. [Suspect]
     Active Substance: OXYGEN
     Indication: MAINTENANCE OF ANAESTHESIA
     Route: 065
     Dates: start: 20191126, end: 20191126
  7. SUPRANE [Suspect]
     Active Substance: DESFLURANE
     Indication: MAINTENANCE OF ANAESTHESIA
     Dosage: APPROXIMATELY 52.5 ML AS SINGLE DOSE
     Route: 055
     Dates: start: 20191126, end: 20191126

REACTIONS (5)
  - Pneumonia [Fatal]
  - Blood pressure decreased [Recovered/Resolved]
  - Gastrointestinal haemorrhage [Unknown]
  - Cardiac arrest [Recovered/Resolved]
  - Disseminated intravascular coagulation [Fatal]
